FAERS Safety Report 23958636 (Version 3)
Quarter: 2024Q3

REPORT INFORMATION
  Report Type: Report from Study
  Country: US (occurrence: US)
  Receive Date: 20240610
  Receipt Date: 20240708
  Transmission Date: 20241017
  Serious: Yes (Hospitalization, Other)
  Sender: ABBVIE
  Company Number: US-ABBVIE-22K-163-4514344-00

PATIENT
  Sex: Female

DRUGS (4)
  1. IMBRUVICA [Suspect]
     Active Substance: IBRUTINIB
     Indication: Chronic lymphocytic leukaemia (in remission)
     Dosage: FORM STRENGTH 140 MG
     Route: 048
     Dates: start: 20220506, end: 20220627
  2. IMBRUVICA [Suspect]
     Active Substance: IBRUTINIB
     Indication: Chronic lymphocytic leukaemia (in remission)
     Route: 048
     Dates: start: 20220409, end: 20220505
  3. IMBRUVICA [Suspect]
     Active Substance: IBRUTINIB
     Indication: Chronic lymphocytic leukaemia (in remission)
     Route: 048
     Dates: start: 20220628, end: 20240602
  4. IMBRUVICA [Suspect]
     Active Substance: IBRUTINIB
     Indication: Chronic lymphocytic leukaemia (in remission)
     Dosage: FIRST ADMIN DATE JUN 2024
     Route: 048
     Dates: end: 20240609

REACTIONS (4)
  - Nephrolithiasis [Unknown]
  - Hypertension [Unknown]
  - Fatigue [Unknown]
  - Keratomileusis [Unknown]

NARRATIVE: CASE EVENT DATE: 20220101
